FAERS Safety Report 4291200-2 (Version None)
Quarter: 2004Q1

REPORT INFORMATION
  Report Type: 
  Country: None (occurrence: None)
  Receive Date: 20040211
  Receipt Date: 20031112
  Transmission Date: 20041129
  Serious: No
  Sender: FDA-Public Use
  Company Number: US-GLAXOSMITHKLINE-A0439416A

PATIENT
  Sex: Male

DRUGS (4)
  1. PAXIL [Suspect]
     Dosage: 60MG PER DAY
     Route: 048
  2. FLAGYL [Concomitant]
  3. MULTIVITAMIN [Concomitant]
  4. PAIN MEDICATION [Concomitant]

REACTIONS (1)
  - PRIAPISM [None]
